FAERS Safety Report 7596708-X (Version None)
Quarter: 2011Q3

REPORT INFORMATION
  Report Type: 
  Country: None (occurrence: None)
  Receive Date: 20110708
  Receipt Date: 20110706
  Transmission Date: 20111222
  Serious: Yes (Other)
  Sender: FDA-Public Use
  Company Number: US-ROXANE LABORATORIES, INC.-2011-RO-00814RO

PATIENT
  Age: 72 Year
  Sex: Female

DRUGS (1)
  1. EXEMESTANE [Suspect]
     Indication: BREAST CANCER

REACTIONS (4)
  - SLEEP TALKING [None]
  - ABDOMINAL DISCOMFORT [None]
  - PRODUCT SOLUBILITY ABNORMAL [None]
  - HALLUCINATION [None]
